APPROVED DRUG PRODUCT: PROMETA
Active Ingredient: METAPROTERENOL SULFATE
Strength: 10MG/5ML
Dosage Form/Route: SYRUP;ORAL
Application: A072023 | Product #001
Applicant: MURO PHARMACEUTICAL INC
Approved: Sep 15, 1988 | RLD: No | RS: No | Type: DISCN